FAERS Safety Report 24358458 (Version 1)
Quarter: 2024Q3

REPORT INFORMATION
  Report Type: Spontaneous
  Country: ID (occurrence: ID)
  Receive Date: 20240924
  Receipt Date: 20240924
  Transmission Date: 20241017
  Serious: Yes (Other)
  Sender: NOVARTIS
  Company Number: ID-002147023-NVSC2024ID189653

PATIENT
  Age: 23 Year
  Sex: Female

DRUGS (3)
  1. IMATINIB [Suspect]
     Active Substance: IMATINIB
     Indication: Chronic myeloid leukaemia
     Dosage: 400 MG, QD
     Route: 065
  2. NILOTINIB [Suspect]
     Active Substance: NILOTINIB
     Dosage: 400 MG, BID
     Route: 065
  3. DASATINIB [Suspect]
     Active Substance: DASATINIB
     Indication: Product used for unknown indication
     Dosage: 100 MG, QD
     Route: 065

REACTIONS (2)
  - Philadelphia chromosome positive [Unknown]
  - Thrombocytosis [Unknown]
